FAERS Safety Report 8086414-X (Version None)
Quarter: 2012Q1

REPORT INFORMATION
  Report Type: 
  Country: None (occurrence: None)
  Receive Date: 20120128
  Receipt Date: 20110510
  Transmission Date: 20120608
  Serious: No
  Sender: FDA-Public Use
  Company Number: US-ABBOTT-11P-163-0724772-00

PATIENT
  Age: 24 Year
  Sex: Male

DRUGS (6)
  1. METHOTREXATE [Concomitant]
     Indication: PRODUCT USED FOR UNKNOWN INDICATION
     Dosage: PILLS
  2. EFFEXOR [Concomitant]
     Indication: PRODUCT USED FOR UNKNOWN INDICATION
  3. HUMIRA [Suspect]
     Indication: PSORIATIC ARTHROPATHY
     Dates: start: 20110309
  4. FOLIC ACID [Concomitant]
     Indication: PRODUCT USED FOR UNKNOWN INDICATION
  5. LUVOX [Concomitant]
     Indication: PRODUCT USED FOR UNKNOWN INDICATION
  6. NAPROSYN [Concomitant]
     Indication: ARTHROPATHY

REACTIONS (8)
  - PAIN IN EXTREMITY [None]
  - EXFOLIATIVE RASH [None]
  - PSORIATIC ARTHROPATHY [None]
  - ARTHRALGIA [None]
  - WEIGHT DECREASED [None]
  - OEDEMA PERIPHERAL [None]
  - JOINT SWELLING [None]
  - RASH [None]
